FAERS Safety Report 7944157-4 (Version None)
Quarter: 2011Q4

REPORT INFORMATION
  Report Type: 
  Country: None (occurrence: None)
  Receive Date: 20111129
  Receipt Date: 20111121
  Transmission Date: 20120403
  Serious: Yes (Hospitalization)
  Sender: FDA-Public Use
  Company Number: US-BIOGENIDEC-2009BI014506

PATIENT
  Age: 54 Year
  Sex: Male
  Weight: 77 kg

DRUGS (7)
  1. ASPIRIN [Concomitant]
     Dates: start: 20040101
  2. NITROGLYCERIN [Concomitant]
     Indication: CHEST PAIN
     Dates: start: 20040101
  3. PROVIGIL [Concomitant]
     Indication: FATIGUE
     Dates: start: 20080101
  4. TOPROL-XL [Concomitant]
     Indication: HYPERTENSION
     Dates: start: 20040101
  5. PLAVIX [Concomitant]
     Dates: start: 20040101
  6. TYSABRI [Suspect]
     Indication: MULTIPLE SCLEROSIS
     Route: 042
     Dates: start: 20080401, end: 20111010
  7. AMPYRA [Concomitant]
     Indication: GAIT DISTURBANCE
     Dates: start: 20100101

REACTIONS (7)
  - CARDIAC DISORDER [None]
  - ECHOCARDIOGRAM ABNORMAL [None]
  - FATIGUE [None]
  - INFUSION SITE SCAR [None]
  - CARDIOVERSION [None]
  - MYOCARDIAL INFARCTION [None]
  - CHEST PAIN [None]
